FAERS Safety Report 13112133 (Version 2)
Quarter: 2017Q1

REPORT INFORMATION
  Report Type: Spontaneous
  Country: US (occurrence: US)
  Receive Date: 20170113
  Receipt Date: 20170227
  Transmission Date: 20170428
  Serious: Yes (Other)
  Sender: FDA-Public Use
  Company Number: US-009507513-1701USA002096

PATIENT
  Sex: Female

DRUGS (4)
  1. VITAMINS (UNSPECIFIED) [Concomitant]
     Active Substance: VITAMINS
     Dosage: UNK
     Route: 048
     Dates: start: 20161214
  2. ZEPATIER [Suspect]
     Active Substance: ELBASVIR\GRAZOPREVIR
     Indication: HEPATITIS C
     Dosage: 1 TABLET DAILY FOR 12 WEEKS
     Route: 048
  3. CHOLECALCIFEROL [Concomitant]
     Active Substance: CHOLECALCIFEROL
     Dosage: UNK, CONCENTRATION: 400 UNIT
     Route: 048
     Dates: start: 20161214
  4. ASCORBIC ACID. [Concomitant]
     Active Substance: ASCORBIC ACID
     Dosage: UNK
     Route: 048
     Dates: start: 20161214

REACTIONS (7)
  - Decreased appetite [Unknown]
  - Nausea [Unknown]
  - Ascites [Unknown]
  - Diarrhoea [Unknown]
  - Influenza like illness [Unknown]
  - Dyspnoea [Unknown]
  - Fatigue [Unknown]
